FAERS Safety Report 7227506-4 (Version None)
Quarter: 2011Q1

REPORT INFORMATION
  Report Type: 
  Country: None (occurrence: None)
  Receive Date: 20110114
  Receipt Date: 20110106
  Transmission Date: 20110831
  Serious: Yes (Other)
  Sender: FDA-Public Use
  Company Number: BE-ACTELION-A-CH2011-43526

PATIENT
  Sex: Female

DRUGS (1)
  1. TRACLEER [Suspect]
     Indication: SYSTEMIC SCLEROSIS
     Dosage: UNK , UNK
     Route: 048

REACTIONS (2)
  - AUTOIMMUNE HEPATITIS [None]
  - LIVER FUNCTION TEST ABNORMAL [None]
